FAERS Safety Report 8789904 (Version 1)
Quarter: 2012Q4

REPORT INFORMATION
  Report Type: 
  Country: GB (occurrence: GB)
  Receive Date: 20120914
  Receipt Date: 20120914
  Transmission Date: 20130627
  Serious: Yes (Other)
  Sender: FDA-Public Use
  Company Number: GB-PFIZER INC-2012224900

PATIENT

DRUGS (1)
  1. DETRUSITOL [Suspect]
     Dosage: UNK

REACTIONS (2)
  - Dysphagia [Unknown]
  - Drug prescribing error [Unknown]
